FAERS Safety Report 24423015 (Version 2)
Quarter: 2025Q1

REPORT INFORMATION
  Report Type: Spontaneous
  Country: US (occurrence: US)
  Receive Date: 20241010
  Receipt Date: 20250225
  Transmission Date: 20250409
  Serious: Yes (Life-Threatening, Hospitalization, Other)
  Sender: RANBAXY
  Company Number: US-SUN PHARMACEUTICAL INDUSTRIES LTD-2024R1-472620

PATIENT
  Age: 74 Year
  Sex: Female

DRUGS (2)
  1. HYDRALAZINE [Suspect]
     Active Substance: HYDRALAZINE HYDROCHLORIDE
     Indication: Hypertension
     Route: 065
  2. ISOSORBIDE [Suspect]
     Active Substance: ISOSORBIDE
     Indication: Hypertension
     Route: 065

REACTIONS (1)
  - Therapeutic response decreased [Unknown]
